FAERS Safety Report 17952294 (Version 1)
Quarter: 2020Q2

REPORT INFORMATION
  Report Type: Spontaneous
  Country: CN (occurrence: CN)
  Receive Date: 20200626
  Receipt Date: 20200626
  Transmission Date: 20200714
  Serious: Yes (Hospitalization)
  Sender: FDA-Public Use
  Company Number: CN-PFIZER INC-2020247533

PATIENT
  Age: 50 Year
  Sex: Female
  Weight: 60 kg

DRUGS (2)
  1. MEPEM [Suspect]
     Active Substance: MEROPENEM
     Indication: INTRACRANIAL INFECTION
     Dosage: 2 G, 3X/DAY
     Route: 041
     Dates: start: 20200525, end: 20200607
  2. VANCOCIN [Suspect]
     Active Substance: VANCOMYCIN HYDROCHLORIDE
     Indication: INTRACRANIAL INFECTION
     Dosage: 1 G, 2X/DAY
     Route: 041
     Dates: start: 20200525, end: 20200604

REACTIONS (2)
  - Urinary tract candidiasis [Recovering/Resolving]
  - Granulocyte count decreased [Recovering/Resolving]

NARRATIVE: CASE EVENT DATE: 20200530
